FAERS Safety Report 9001292 (Version 1)
Quarter: 2013Q1

REPORT INFORMATION
  Report Type: Spontaneous
  Country: AT (occurrence: AT)
  Receive Date: 20130107
  Receipt Date: 20130107
  Transmission Date: 20140127
  Serious: Yes (Other)
  Sender: FDA-Public Use
  Company Number: AT-ASTRAZENECA-2012SE93035

PATIENT
  Age: 12418 Day
  Sex: Female
  Weight: 75 kg

DRUGS (1)
  1. VIMOVO [Suspect]
     Indication: EPICONDYLITIS
     Dosage: 500MG, TWO TIMES A DAY
     Route: 048
     Dates: start: 20121129, end: 20121202

REACTIONS (3)
  - Fatigue [Recovering/Resolving]
  - Generalised oedema [Recovering/Resolving]
  - Nausea [Recovering/Resolving]
